FAERS Safety Report 13393402 (Version 1)
Quarter: 2017Q1

REPORT INFORMATION
  Report Type: Spontaneous
  Country: US (occurrence: US)
  Receive Date: 20170331
  Receipt Date: 20170331
  Transmission Date: 20170429
  Serious: No
  Sender: FDA-Public Use
  Company Number: US-SEPTODONT-201603542

PATIENT

DRUGS (2)
  1. LIDOCAINE HYDROCHLORIDE 2% WITH EPINEPHRINE 1:100,000 INJECTION [Suspect]
     Active Substance: EPINEPHRINE\LIDOCAINE HYDROCHLORIDE
     Indication: LOCAL ANAESTHESIA
     Dosage: UPPER RIGHT AND LOWER RIGHT HEALTHY TISSUE. INFILTRATION WITH SHORT NEEDLE
     Route: 004
  2. PROJEL-20 [Concomitant]
     Active Substance: BENZOCAINE
     Indication: LOCAL ANAESTHESIA
     Route: 061

REACTIONS (1)
  - Drug ineffective [Recovered/Resolved]

NARRATIVE: CASE EVENT DATE: 201607
